FAERS Safety Report 6405258-5 (Version None)
Quarter: 2009Q4

REPORT INFORMATION
  Report Type: 
  Country: None (occurrence: None)
  Receive Date: 20091019
  Receipt Date: 20091008
  Transmission Date: 20100525
  Serious: Yes (Hospitalization)
  Sender: FDA-Public Use
  Company Number: SE-ASTRAZENECA-2009SE18787

PATIENT
  Age: 69 Year
  Sex: Female

DRUGS (9)
  1. ARIMIDEX [Suspect]
     Indication: BREAST CANCER
     Route: 048
     Dates: start: 19970101, end: 20060101
  2. ARIMIDEX [Suspect]
     Route: 048
  3. FASLODEX [Suspect]
     Indication: BREAST CANCER
     Route: 030
     Dates: start: 20080101, end: 20090101
  4. AROMASIN [Suspect]
     Dates: start: 20080201, end: 20090101
  5. DRUG NOT SHOWN [Suspect]
     Dates: start: 19950101, end: 19970101
  6. EPIRUBICIN MEDA [Suspect]
     Dates: start: 20020901, end: 20070901
  7. KALCITENA [Concomitant]
  8. ACETAMINOPHEN [Concomitant]
     Route: 048
  9. ZOPIKLON MYLAN [Concomitant]

REACTIONS (1)
  - PULMONARY HYPERTENSION [None]
